FAERS Safety Report 25593091 (Version 4)
Quarter: 2025Q3

REPORT INFORMATION
  Report Type: Report from Study
  Country: EG (occurrence: EG)
  Receive Date: 20250722
  Receipt Date: 20250822
  Transmission Date: 20251020
  Serious: Yes (Other)
  Sender: BIOGEN
  Company Number: EG-BIOGEN-2025BI01317761

PATIENT
  Age: 21 Year
  Sex: Female

DRUGS (2)
  1. TYSABRI [Suspect]
     Active Substance: NATALIZUMAB
     Indication: Multiple sclerosis
     Dosage: 9 DOSES OF TYSABRI
     Route: 050
     Dates: start: 20240902, end: 20250502
  2. Irospect [Concomitant]
     Indication: Routine health maintenance
     Route: 050

REACTIONS (13)
  - Cephalo-pelvic disproportion [Recovered/Resolved]
  - Iron deficiency [Unknown]
  - Abdominal pain upper [Recovered/Resolved]
  - Lactation insufficiency [Not Recovered/Not Resolved]
  - Blood calcium decreased [Unknown]
  - Loose tooth [Unknown]
  - Pain [Recovered/Resolved]
  - Maternal exposure during pregnancy [Recovered/Resolved]
  - Eating disorder [Unknown]
  - Hypersomnia [Unknown]
  - Platelet count decreased [Unknown]
  - Dizziness [Recovered/Resolved]
  - Fatigue [Unknown]

NARRATIVE: CASE EVENT DATE: 20241001
